FAERS Safety Report 4512372-8 (Version None)
Quarter: 2004Q4

REPORT INFORMATION
  Report Type: 
  Country: None (occurrence: None)
  Receive Date: 20041123
  Receipt Date: 20041115
  Transmission Date: 20050328
  Serious: Yes (Life-Threatening)
  Sender: FDA-Public Use
  Company Number: USA-2004-0017665

PATIENT
  Age: 60 Year
  Sex: Female

DRUGS (1)
  1. CEFDITOREN PIVOXIL (SIMILAR TO NDA 21-222) (CEFDITOREN PIVOXIL) OTHER [Suspect]
     Indication: NASOPHARYNGITIS
     Dosage: 100 MG, DAILY, ORAL
     Route: 048
     Dates: start: 20041109, end: 20041109

REACTIONS (2)
  - ANAPHYLACTIC SHOCK [None]
  - DEPRESSED LEVEL OF CONSCIOUSNESS [None]
